FAERS Safety Report 12473277 (Version 1)
Quarter: 2016Q2

REPORT INFORMATION
  Report Type: Report from Study
  Country: DE (occurrence: DE)
  Receive Date: 20160616
  Receipt Date: 20160616
  Transmission Date: 20160815
  Serious: Yes (Other)
  Sender: FDA-Public Use
  Company Number: DE-TEVA-339393USA

PATIENT

DRUGS (7)
  1. BENDAMUSTINE [Suspect]
     Active Substance: BENDAMUSTINE
     Indication: CHRONIC LYMPHOCYTIC LEUKAEMIA
     Dosage: UNKNOWN
     Route: 042
     Dates: start: 20120209
  2. BENDAMUSTINE [Suspect]
     Active Substance: BENDAMUSTINE
     Indication: BONE MARROW LEUKAEMIC CELL INFILTRATION
     Dosage: CYCLIC (C2,D1)
     Route: 042
     Dates: start: 20120303
  3. BENDAMUSTINE [Suspect]
     Active Substance: BENDAMUSTINE
     Dosage: CYCLIC (C3,D1)
     Route: 042
     Dates: start: 20120322
  4. BENDAMUSTINE [Suspect]
     Active Substance: BENDAMUSTINE
     Dosage: CYCLIC (C5, D1)
     Route: 042
     Dates: start: 20120614
  5. BENDAMUSTINE [Suspect]
     Active Substance: BENDAMUSTINE
     Indication: WHITE BLOOD CELL COUNT INCREASED
     Dosage: CYCLIC (C1, D1)
     Route: 042
     Dates: start: 20120209
  6. BENDAMUSTINE [Suspect]
     Active Substance: BENDAMUSTINE
     Dosage: CYCLIC (C6,D1)
     Route: 042
     Dates: start: 20120814
  7. BENDAMUSTINE [Suspect]
     Active Substance: BENDAMUSTINE
     Dosage: CYCLIC (C4,D1)
     Route: 042
     Dates: start: 20120503

REACTIONS (3)
  - Erysipelas [Recovered/Resolved]
  - Nausea [Recovered/Resolved]
  - Gastritis [Not Recovered/Not Resolved]

NARRATIVE: CASE EVENT DATE: 20120302
